FAERS Safety Report 19349640 (Version 1)
Quarter: 2021Q2

REPORT INFORMATION
  Report Type: Spontaneous
  Country: US (occurrence: US)
  Receive Date: 20210528
  Receipt Date: 20210528
  Transmission Date: 20210717
  Serious: No
  Sender: FDA-Public Use
  Company Number: None

PATIENT
  Age: 15 Year
  Sex: Female

DRUGS (1)
  1. HUMIRA [Suspect]
     Active Substance: ADALIMUMAB
     Route: 058
     Dates: start: 20191130

REACTIONS (4)
  - Joint swelling [None]
  - Arthritis [None]
  - Peripheral swelling [None]
  - Therapeutic product effect incomplete [None]

NARRATIVE: CASE EVENT DATE: 202101
